FAERS Safety Report 5052488-3 (Version None)
Quarter: 2006Q3

REPORT INFORMATION
  Report Type: 
  Country: None (occurrence: None)
  Receive Date: 20060712
  Receipt Date: 20060712
  Transmission Date: 20061208
  Serious: Yes (Other)
  Sender: FDA-Public Use
  Company Number: None

PATIENT
  Age: 52 Year
  Sex: Female
  Weight: 68.0396 kg

DRUGS (13)
  1. LYRICA [Suspect]
     Indication: NEURALGIA
     Dosage: 150 MG   BID   PO
     Route: 048
     Dates: start: 20060305, end: 20060711
  2. COPAXONE [Concomitant]
  3. EFFEXOR XR [Concomitant]
  4. BACLOFEN [Concomitant]
  5. ASPIRIN [Concomitant]
  6. VITAMIN D [Concomitant]
  7. LIPITOR [Concomitant]
  8. LORATDINE [Concomitant]
  9. FLUOXETINE [Concomitant]
  10. OXYTROL [Concomitant]
  11. BONIVA [Concomitant]
  12. IRON [Concomitant]
  13. GINKO BILOBA [Concomitant]

REACTIONS (2)
  - BODY MASS INDEX INCREASED [None]
  - WEIGHT INCREASED [None]
